FAERS Safety Report 8824451 (Version 1)
Quarter: 2012Q4

REPORT INFORMATION
  Report Type: 
  Country: JP (occurrence: JP)
  Receive Date: 20121004
  Receipt Date: 20121004
  Transmission Date: 20130627
  Serious: Yes (Hospitalization)
  Sender: FDA-Public Use
  Company Number: JP-ELI_LILLY_AND_COMPANY-JP201205003398

PATIENT
  Age: 80 Year
  Sex: Female

DRUGS (2)
  1. FORTEO [Suspect]
     Dosage: UNK
     Route: 058
     Dates: start: 201202, end: 201206
  2. FORTEO [Suspect]
     Dosage: UNK
     Route: 058
     Dates: end: 201207

REACTIONS (3)
  - Autonomic nervous system imbalance [Unknown]
  - Back pain [Unknown]
  - Dizziness [Not Recovered/Not Resolved]
